FAERS Safety Report 22233644 (Version 1)
Quarter: 2023Q2

REPORT INFORMATION
  Report Type: Spontaneous
  Country: US (occurrence: None)
  Receive Date: 20230420
  Receipt Date: 20230420
  Transmission Date: 20230721
  Serious: No
  Sender: FDA-Public Use
  Company Number: US-ROCHE-3033760

PATIENT
  Sex: Male

DRUGS (1)
  1. ESBRIET [Suspect]
     Active Substance: PIRFENIDONE
     Indication: Idiopathic pulmonary fibrosis
     Dosage: ONGOING - YES
     Route: 048
     Dates: start: 20211123

REACTIONS (6)
  - Gastrointestinal disorder [Unknown]
  - Flatulence [Unknown]
  - Abdominal distension [Unknown]
  - Abdominal pain upper [Unknown]
  - Fatigue [Unknown]
  - Insomnia [Unknown]
